FAERS Safety Report 19576638 (Version 1)
Quarter: 2021Q3

REPORT INFORMATION
  Report Type: Spontaneous
  Country: US (occurrence: US)
  Receive Date: 20210719
  Receipt Date: 20210719
  Transmission Date: 20211014
  Serious: No
  Sender: FDA-Public Use
  Company Number: None

PATIENT
  Age: 67 Year
  Sex: Female

DRUGS (2)
  1. PIPERACILLIN/TAZOBACTAM (PIPERACILLIN NA 3GM/TAZOBACTAM 0.375GM/50ML [Suspect]
     Active Substance: PIPERACILLIN SODIUM\TAZOBACTAM SODIUM
     Indication: SURGERY
     Dosage: ?          OTHER STRENGTH:3 GM, 0.375GM/50ML;?
     Route: 042
     Dates: start: 20210518, end: 20210530
  2. PANTOPRAZOLE (PANTOPRAZOLE NA 40MG/VIL/INJ) [Suspect]
     Active Substance: PANTOPRAZOLE SODIUM
     Indication: SURGERY
     Dosage: ?          OTHER STRENGTH:40MG/VIL;?
     Route: 042
     Dates: start: 20210519, end: 20210531

REACTIONS (5)
  - Colectomy [None]
  - Anastomotic leak [None]
  - Sepsis [None]
  - Pancytopenia [None]
  - Neutropenic sepsis [None]

NARRATIVE: CASE EVENT DATE: 20210529
